FAERS Safety Report 12518167 (Version 1)
Quarter: 2016Q2

REPORT INFORMATION
  Report Type: Report from Study
  Country: CA (occurrence: CA)
  Receive Date: 20160630
  Receipt Date: 20160630
  Transmission Date: 20160815
  Serious: Yes (Other)
  Sender: FDA-Public Use
  Company Number: CA-BEH-2016057735

PATIENT
  Age: 45 Year
  Sex: Female
  Weight: 53.8 kg

DRUGS (6)
  1. HIZENTRA [Suspect]
     Active Substance: HUMAN IMMUNOGLOBULIN G
     Indication: HYPOGAMMAGLOBULINAEMIA
     Dosage: UNK
     Route: 058
     Dates: start: 20160102
  2. HIZENTRA [Suspect]
     Active Substance: HUMAN IMMUNOGLOBULIN G
     Dosage: UNK
     Route: 065
  3. HIZENTRA [Suspect]
     Active Substance: HUMAN IMMUNOGLOBULIN G
     Dosage: 4 G, EVERY 3 DAYS
     Route: 058
     Dates: start: 201601
  4. HIZENTRA [Suspect]
     Active Substance: HUMAN IMMUNOGLOBULIN G
     Indication: PRIMARY IMMUNODEFICIENCY SYNDROME
     Dosage: PUSH METHOD
     Route: 058
     Dates: start: 20151126
  5. HIZENTRA [Suspect]
     Active Substance: HUMAN IMMUNOGLOBULIN G
     Dosage: 12 G ONE WEEK, FOLLOWED BY 8 G THE SECOND WEEK AND THEN ALTERNATES; PUMP METHOD
     Route: 058
     Dates: start: 20160131
  6. BENADRYL [Concomitant]
     Active Substance: DIPHENHYDRAMINE HYDROCHLORIDE
     Indication: PREMEDICATION
     Dosage: 75 MG, UNK
     Route: 065

REACTIONS (8)
  - Migraine [Recovering/Resolving]
  - Haemoglobin decreased [Unknown]
  - Infusion site bruising [Unknown]
  - Headache [Recovering/Resolving]
  - Infusion site pain [Unknown]
  - Fatigue [Recovering/Resolving]
  - Infusion site reaction [Recovering/Resolving]
  - Infusion site urticaria [Recovered/Resolved]

NARRATIVE: CASE EVENT DATE: 20160102
